FAERS Safety Report 6112835-8 (Version None)
Quarter: 2009Q1

REPORT INFORMATION
  Report Type: 
  Country: None (occurrence: None)
  Receive Date: 20090312
  Receipt Date: 20090309
  Transmission Date: 20090719
  Serious: Yes (Life-Threatening, Disabling)
  Sender: FDA-Public Use
  Company Number: JP-ASTRAZENECA-2009AP01163

PATIENT
  Age: 74 Year
  Sex: Male
  Weight: 84 kg

DRUGS (12)
  1. CASODEX [Suspect]
     Indication: PROSTATE CANCER
     Route: 048
     Dates: start: 20090122, end: 20090205
  2. BUFFERIN [Concomitant]
     Indication: CARDIAC FAILURE CONGESTIVE
     Route: 048
     Dates: end: 20090205
  3. ZYLORIC [Concomitant]
     Indication: GOUT
     Route: 048
     Dates: end: 20090205
  4. BLOPRESS [Concomitant]
     Indication: HYPERTENSION
     Route: 048
     Dates: end: 20090205
  5. LASIX [Concomitant]
     Indication: RENAL FAILURE CHRONIC
     Route: 048
     Dates: end: 20090205
  6. SELBEX [Concomitant]
     Indication: GASTRITIS
     Route: 048
     Dates: end: 20090205
  7. SIGMART [Concomitant]
     Indication: CARDIAC FAILURE CONGESTIVE
     Route: 048
     Dates: end: 20090205
  8. PERSANTIN-L [Concomitant]
     Indication: CARDIAC FAILURE CONGESTIVE
     Route: 048
     Dates: end: 20090205
  9. ADALAT CC [Concomitant]
     Indication: HYPERTENSION
     Route: 048
     Dates: end: 20090205
  10. GLUCOBAY [Concomitant]
     Indication: DIABETES MELLITUS
     Route: 048
     Dates: end: 20090205
  11. ACTOS [Concomitant]
     Indication: DIABETES MELLITUS
     Route: 048
     Dates: end: 20090205
  12. KALIMATE [Concomitant]
     Indication: RENAL FAILURE CHRONIC
     Route: 048
     Dates: end: 20090205

REACTIONS (4)
  - CARDIAC FAILURE CONGESTIVE [None]
  - CEREBELLAR INFARCTION [None]
  - DIABETIC NEPHROPATHY [None]
  - DUODENAL ULCER HAEMORRHAGE [None]
